FAERS Safety Report 8430930 (Version 2)
Quarter: 2012Q4

REPORT INFORMATION
  Report Type: 
  Country: NL (occurrence: NL)
  Receive Date: 20120228
  Receipt Date: 20121221
  Transmission Date: 20130627
  Serious: Yes (Death)
  Sender: FDA-Public Use
  Company Number: PHHY2012NL016514

PATIENT
  Age: 67 Year
  Sex: Female

DRUGS (1)
  1. TOBI [Suspect]

REACTIONS (1)
  - Death [Fatal]
